FAERS Safety Report 11343053 (Version 1)
Quarter: 2015Q3

REPORT INFORMATION
  Report Type: Spontaneous
  Country: US (occurrence: US)
  Receive Date: 20150805
  Receipt Date: 20150805
  Transmission Date: 20151125
  Serious: No
  Sender: FDA-Public Use
  Company Number: US-ANACOR-2015ANA00064

PATIENT
  Age: 65 Year
  Sex: Female
  Weight: 56.69 kg

DRUGS (3)
  1. KERYDIN [Suspect]
     Active Substance: TAVABOROLE
     Indication: ONYCHOMYCOSIS
     Dosage: 1 DOSAGE UNITS, 1X/DAY
     Route: 061
     Dates: start: 20150506, end: 20150531
  2. SYNTHROID [Concomitant]
     Active Substance: LEVOTHYROXINE SODIUM
     Dosage: 25 ?G, 1X/DAY
  3. PRAVASTATIN [Concomitant]
     Active Substance: PRAVASTATIN\PRAVASTATIN SODIUM
     Dosage: 40 MG, 1X/DAY

REACTIONS (2)
  - Pruritus [Recovering/Resolving]
  - Papule [Recovering/Resolving]

NARRATIVE: CASE EVENT DATE: 20150531
